FAERS Safety Report 21331877 (Version 1)
Quarter: 2022Q3

REPORT INFORMATION
  Report Type: Spontaneous
  Country: FR (occurrence: FR)
  Receive Date: 20220914
  Receipt Date: 20220914
  Transmission Date: 20221027
  Serious: Yes (Hospitalization)
  Sender: FDA-Public Use
  Company Number: None

PATIENT
  Age: 87 Year
  Sex: Female

DRUGS (4)
  1. PROPRANOLOL HYDROCHLORIDE [Suspect]
     Active Substance: PROPRANOLOL HYDROCHLORIDE
     Indication: Hypertension
     Dosage: CHLORHYDRATE DE PROPRANOLOL, THERAPY START DATE : NASK, FREQUENCY TIME : 1 DAY, UNIT DOSE: 40 MG
     Route: 065
     Dates: end: 20220113
  2. CANDESARTAN [Suspect]
     Active Substance: CANDESARTAN
     Indication: Hypertension
     Dosage: THERAPY START DATE: NASK, UNIT DOSE : 20 MG, FREQUENCY TIME : 1 DAY
     Route: 065
     Dates: end: 20220113
  3. AUGMENTIN [Suspect]
     Active Substance: AMOXICILLIN\CLAVULANATE POTASSIUM
     Indication: Diarrhoea
     Dosage: DURATION: 5 DAYS
     Dates: start: 20220103, end: 20220108
  4. ESIDREX [Suspect]
     Active Substance: HYDROCHLOROTHIAZIDE
     Indication: Hypertension
     Dosage: THERAPY START DATE : NASK, UNIT DOSE : 8 MG, FREQUENCY TIME : 1 DAY
     Dates: end: 20220113

REACTIONS (2)
  - Hypotension [Recovered/Resolved]
  - Pseudomembranous colitis [Recovered/Resolved]

NARRATIVE: CASE EVENT DATE: 20220103
